FAERS Safety Report 16104132 (Version 2)
Quarter: 2019Q1

REPORT INFORMATION
  Report Type: Spontaneous
  Country: GB (occurrence: GB)
  Receive Date: 20190322
  Receipt Date: 20190329
  Transmission Date: 20190418
  Serious: Yes (Hospitalization)
  Sender: FDA-Public Use
  Company Number: GB-ACCORD-114498

PATIENT
  Age: 74 Year
  Sex: Female

DRUGS (16)
  1. BISOPROLOL [Concomitant]
     Active Substance: BISOPROLOL
  2. DICLOFENAC [Concomitant]
     Active Substance: DICLOFENAC
  3. ISOSORBIDE. [Concomitant]
     Active Substance: ISOSORBIDE
  4. RANITIDINE. [Concomitant]
     Active Substance: RANITIDINE
  5. TRAMADOL. [Concomitant]
     Active Substance: TRAMADOL
  6. ADCAL-D3 [Concomitant]
     Active Substance: CALCIUM CARBONATE\CHOLECALCIFEROL
  7. AMITRIPTYLINE [Concomitant]
     Active Substance: AMITRIPTYLINE
     Dosage: AT NIGHT.
  8. QUININE [Concomitant]
     Active Substance: QUININE
     Dosage: AT NIGHT.
  9. SPIRONOLACTONE. [Concomitant]
     Active Substance: SPIRONOLACTONE
  10. APIXABAN [Suspect]
     Active Substance: APIXABAN
     Indication: ATRIAL FIBRILLATION
  11. NICORANDIL [Concomitant]
     Active Substance: NICORANDIL
  12. ATORVASTATIN [Concomitant]
     Active Substance: ATORVASTATIN
     Dosage: AT NIGHT.
  13. MIRTAZAPINE. [Concomitant]
     Active Substance: MIRTAZAPINE
     Dosage: AT NIGHT.
  14. CLOPIDOGREL [Suspect]
     Active Substance: CLOPIDOGREL BISULFATE
     Indication: CARDIAC DISORDER
  15. FUROSEMIDE. [Concomitant]
     Active Substance: FUROSEMIDE
     Dosage: IN THE MORNING.
  16. PERINDOPRIL/PERINDOPRIL ERBUMINE [Concomitant]

REACTIONS (4)
  - Headache [Unknown]
  - Hemiparesis [Unknown]
  - Dysarthria [Unknown]
  - Haemorrhage intracranial [Unknown]
